FAERS Safety Report 9357408 (Version 1)
Quarter: 2013Q2

REPORT INFORMATION
  Report Type: Spontaneous
  Country: US (occurrence: None)
  Receive Date: 20130617
  Receipt Date: 20130617
  Transmission Date: 20140414
  Serious: Yes (Other)
  Sender: FDA-Public Use
  Company Number: A1026564A

PATIENT
  Age: 79 Year
  Sex: Female

DRUGS (1)
  1. METHYLCELLULOSE [Suspect]
     Indication: PRODUCT USED FOR UNKNOWN INDICATION
     Route: 048

REACTIONS (3)
  - Kidney infection [None]
  - Cystitis [None]
  - Chromaturia [None]
